FAERS Safety Report 10186523 (Version 1)
Quarter: 2014Q2

REPORT INFORMATION
  Report Type: Spontaneous
  Country: US (occurrence: US)
  Receive Date: 20140521
  Receipt Date: 20140521
  Transmission Date: 20141212
  Serious: Yes (Hospitalization)
  Sender: FDA-Public Use
  Company Number: US-ROCHE-1400789

PATIENT
  Sex: Male

DRUGS (10)
  1. KLONOPIN [Suspect]
     Indication: CONVULSION
     Route: 065
  2. KLONOPIN [Suspect]
     Indication: CONVULSION
  3. CLONAZEPAM [Suspect]
     Indication: CONVULSION
     Dosage: TABLETS - CRUSHED UP, FEEDING TUBE AND DOSAGE INCREASED OVER THE YEARS SINCE HE WAS BABY
     Route: 048
  4. CLONAZEPAM [Suspect]
     Indication: CONVULSION
  5. PHENOBARBITONE [Concomitant]
     Indication: CONVULSION
     Route: 051
  6. KEPPRA [Concomitant]
     Indication: CONVULSION
     Dosage: 3 TEASPOONS 3 TIMES A DAY
     Route: 051
  7. ROBINUL [Concomitant]
     Route: 065
  8. PREVACID [Concomitant]
     Route: 065
  9. PROBIOTIC (ENZYMES, INC) [Concomitant]
  10. ASPIRIN [Concomitant]
     Route: 051

REACTIONS (3)
  - Convulsion [Unknown]
  - Drug ineffective [Unknown]
  - Pyrexia [Unknown]
